FAERS Safety Report 5552193-0 (Version None)
Quarter: 2007Q4

REPORT INFORMATION
  Report Type: 
  Country: None (occurrence: None)
  Receive Date: 20071212
  Receipt Date: 20070612
  Transmission Date: 20080405
  Serious: No
  Sender: FDA-Public Use
  Company Number: US-AMGEN-KDL222716

PATIENT
  Sex: Female

DRUGS (3)
  1. ENBREL [Suspect]
     Indication: RHEUMATOID ARTHRITIS
     Route: 058
     Dates: start: 20070110
  2. AZULFIDINE EN-TABS [Concomitant]
     Dates: start: 20030101
  3. LODINE [Concomitant]
     Dates: start: 20040101

REACTIONS (2)
  - FLUID RETENTION [None]
  - WEIGHT INCREASED [None]
